FAERS Safety Report 6438096-8 (Version None)
Quarter: 2009Q4

REPORT INFORMATION
  Report Type: 
  Country: None (occurrence: None)
  Receive Date: 20091112
  Receipt Date: 20091105
  Transmission Date: 20100525
  Serious: Yes (Other)
  Sender: FDA-Public Use
  Company Number: US-ELI_LILLY_AND_COMPANY-US200911002714

PATIENT
  Sex: Female

DRUGS (2)
  1. HUMALOG [Suspect]
  2. HUMULIN N [Suspect]
     Dosage: UNK, UNK

REACTIONS (3)
  - CEREBROVASCULAR ACCIDENT [None]
  - COELIAC DISEASE [None]
  - MALAISE [None]
